FAERS Safety Report 9519524 (Version 6)
Quarter: 2018Q2

REPORT INFORMATION
  Report Type: Report from Study
  Country: DE (occurrence: DE)
  Receive Date: 20130912
  Receipt Date: 20180427
  Transmission Date: 20180711
  Serious: Yes (Hospitalization)
  Sender: FDA-Public Use
  Company Number: DE-PFIZER INC-2013257773

PATIENT
  Age: 53 Year
  Sex: Female
  Weight: 63 kg

DRUGS (6)
  1. AFINITOR [Suspect]
     Active Substance: EVEROLIMUS
     Indication: BREAST CANCER METASTATIC
     Dosage: 10 MG, 1X/DAY (ALSO REPORTED AS 20 MG, AS NEEDED/REQUIRED)
     Route: 048
     Dates: start: 20130506, end: 20130524
  2. FENTANYL. [Concomitant]
     Active Substance: FENTANYL
     Indication: PRODUCT USED FOR UNKNOWN INDICATION
     Dosage: 37.5 UG, CYCLIC (EVERY HR, EVERY THREE DAYS/ EVERY 72 HOURS)
     Route: 062
     Dates: start: 20121029, end: 20130603
  3. SEVREDOL [Suspect]
     Active Substance: MORPHINE
     Dosage: 20 MG, AS NEEDED
     Route: 065
     Dates: start: 20130513, end: 20130603
  4. FENTANYL. [Concomitant]
     Active Substance: FENTANYL
     Dosage: 37.5 UG/HR, EVERY 72 HOURS
     Route: 062
     Dates: start: 20130603
  5. SEVREDOL [Suspect]
     Active Substance: MORPHINE
     Indication: PRODUCT USED FOR UNKNOWN INDICATION
     Dosage: 10 MG, AS NEEDED
     Route: 065
     Dates: start: 20130429, end: 20130512
  6. EXEMESTANE. [Suspect]
     Active Substance: EXEMESTANE
     Indication: BREAST CANCER METASTATIC
     Dosage: 25 MG, 1X/DAY (EVERY DAY)
     Route: 065
     Dates: start: 20130506, end: 20130524

REACTIONS (3)
  - Somnolence [Recovered/Resolved]
  - Overdose [Recovered/Resolved]
  - Bradypnoea [Recovered/Resolved]

NARRATIVE: CASE EVENT DATE: 20130519
